FAERS Safety Report 5689968-3 (Version None)
Quarter: 2008Q1

REPORT INFORMATION
  Report Type: 
  Country: None (occurrence: None)
  Receive Date: 20080331
  Receipt Date: 20080331
  Transmission Date: 20080703
  Serious: Yes (Other)
  Sender: FDA-Public Use
  Company Number: None

PATIENT
  Age: 27 Year
  Sex: Female
  Weight: 145.151 kg

DRUGS (3)
  1. SINGULAIR [Suspect]
     Indication: ASTHMA
     Dosage: 10 MG TABLET 1 TIME PER DAY PO
     Route: 048
  2. SINGULAIR [Suspect]
     Indication: MULTIPLE ALLERGIES
     Dosage: 10 MG TABLET 1 TIME PER DAY PO
     Route: 048
  3. SINGULAIR [Suspect]
     Indication: ASTHMA
     Dosage: 4MG CHEWABLE 1 TIME PER DAY PO
     Route: 048

REACTIONS (1)
  - MOOD SWINGS [None]
